FAERS Safety Report 15502652 (Version 1)
Quarter: 2018Q4

REPORT INFORMATION
  Report Type: Spontaneous
  Country: SE (occurrence: SE)
  Receive Date: 20181015
  Receipt Date: 20181015
  Transmission Date: 20190205
  Serious: Yes (Hospitalization, Other)
  Sender: FDA-Public Use
  Company Number: SE-009507513-1810SWE005171

PATIENT
  Age: 29 Year
  Sex: Female

DRUGS (5)
  1. BETAPRED (BETAMETHASONE SODIUM PHOSPHATE) [Concomitant]
     Dosage: UNK
     Dates: start: 20180903
  2. ONDANSETRON [Concomitant]
     Active Substance: ONDANSETRON
     Dosage: UNK
     Dates: start: 20180903
  3. CISPLATIN. [Concomitant]
     Active Substance: CISPLATIN
     Dosage: UNK
     Dates: start: 20180903
  4. EMEND [Suspect]
     Active Substance: APREPITANT
     Indication: PROPHYLAXIS OF NAUSEA AND VOMITING
     Dosage: UNK
     Dates: start: 20180910, end: 20180910
  5. EMEND [Suspect]
     Active Substance: APREPITANT
     Dosage: 125 MG, QD
     Route: 048
     Dates: start: 20180917, end: 20180917

REACTIONS (7)
  - Erythema [Recovered/Resolved]
  - Anaphylactic reaction [Recovered/Resolved]
  - Rash [Recovered/Resolved]
  - Tachycardia [Recovered/Resolved]
  - Chills [Recovered/Resolved]
  - Pyrexia [Recovered/Resolved]
  - Dyspnoea [Recovered/Resolved]

NARRATIVE: CASE EVENT DATE: 20180917
